FAERS Safety Report 24768239 (Version 2)
Quarter: 2025Q3

REPORT INFORMATION
  Report Type: Report from Study
  Country: IN (occurrence: IN)
  Receive Date: 20241223
  Receipt Date: 20250803
  Transmission Date: 20251021
  Serious: Yes (Other)
  Sender: ALEXION PHARMACEUTICALS
  Company Number: IN-AstraZeneca-CH-00772821A

PATIENT
  Sex: Male

DRUGS (1)
  1. DURVALUMAB [Suspect]
     Active Substance: DURVALUMAB
     Indication: Targeted cancer therapy
     Dosage: 1500 MILLIGRAM, Q3W
     Dates: end: 20240930

REACTIONS (2)
  - Disease progression [Unknown]
  - Bedridden [Unknown]
